FAERS Safety Report 23872152 (Version 8)
Quarter: 2024Q4

REPORT INFORMATION
  Report Type: Spontaneous
  Country: CA (occurrence: CA)
  Receive Date: 20240520
  Receipt Date: 20241214
  Transmission Date: 20250115
  Serious: Yes (Hospitalization, Other)
  Sender: CELLTRION
  Company Number: CA-PFIZER INC-202400090127

PATIENT

DRUGS (23)
  1. INFLECTRA [Suspect]
     Active Substance: INFLIXIMAB-DYYB
     Indication: Colitis ulcerative
     Dosage: 400 MG, 0, 2, 6, THEN EVERY 8 WEEKS
     Route: 042
     Dates: start: 20240119
  2. INFLECTRA [Suspect]
     Active Substance: INFLIXIMAB-DYYB
     Dosage: 400 MG, 0, 2, 6, THEN EVERY 8 WEEKS
     Route: 042
     Dates: start: 20240301
  3. INFLECTRA [Suspect]
     Active Substance: INFLIXIMAB-DYYB
     Dosage: 400 MG, AFTER 7 WEEKS AND 4 DAYS (PRESCRIBED EVERY 4 WEEKS)
     Route: 042
     Dates: start: 20240423, end: 20240423
  4. INFLECTRA [Suspect]
     Active Substance: INFLIXIMAB-DYYB
     Dosage: 1 DF, RESCUE DOSE FOR 5 MG/KG (400 MG) AND THEN 10 MG/KG EVERY 4 WEEKS
     Route: 042
     Dates: start: 20240514
  5. INFLECTRA [Suspect]
     Active Substance: INFLIXIMAB-DYYB
     Dosage: 1 DF, RESCUE DOSE FOR 5 MG/KG (400 MG) AND THEN 10 MG/KG EVERY 4 WEEKS
     Route: 042
     Dates: start: 20240823
  6. INFLECTRA [Suspect]
     Active Substance: INFLIXIMAB-DYYB
     Dosage: 760 MG (1 DF, RESCUE DOSE FOR 5 MG/KG (400MG) AND THEN 10 MG/KG EVERY 4 WEEKS)
     Route: 042
     Dates: start: 20240920
  7. INFLECTRA [Suspect]
     Active Substance: INFLIXIMAB-DYYB
     Dosage: 760 MG (10MG/KG), EVERY 4 WEEKS
     Route: 042
     Dates: start: 20241021
  8. INFLECTRA [Suspect]
     Active Substance: INFLIXIMAB-DYYB
     Dosage: 1 DF, RESCUE DOSE FOR 5 MG/KG (400MG) AND THEN 10 MG/KG EVERY 4 WEEKS
     Route: 042
     Dates: start: 20241115
  9. CALCIUM [Concomitant]
     Active Substance: CALCIUM
     Indication: Prophylaxis
     Dosage: 1 DF
  10. CALCIUM [Concomitant]
     Active Substance: CALCIUM
     Dosage: 500 MG
  11. EMPAGLIFLOZIN [Concomitant]
     Active Substance: EMPAGLIFLOZIN
     Dosage: 5 MG
  12. FERROUS FUMARATE [Concomitant]
     Active Substance: FERROUS FUMARATE
     Dosage: 300 MG
  13. HYDROCORTISONE [Concomitant]
     Active Substance: HYDROCORTISONE
     Dosage: 1 DF
  14. INSULIN NOS [Concomitant]
     Active Substance: INSULIN NOS
     Indication: Diabetes mellitus
     Dosage: UNK
     Route: 058
  15. LINAGLIPTIN [Concomitant]
     Active Substance: LINAGLIPTIN
     Dosage: 1 DF
  16. METHOTREXATE [Concomitant]
     Active Substance: METHOTREXATE
     Dosage: 15 MG, WEEKLY
  17. METFORMIN [Concomitant]
     Active Substance: METFORMIN HYDROCHLORIDE
     Dosage: 1 DF
  18. FOLIC ACID [Concomitant]
     Active Substance: FOLIC ACID
     Indication: Aortitis
     Dosage: UNK
  19. PANTOPRAZOLE [Concomitant]
     Active Substance: PANTOPRAZOLE
     Dosage: 1 DF
  20. PREDNISONE [Concomitant]
     Active Substance: PREDNISONE
     Dosage: UNK
     Dates: end: 20240826
  21. PROBIOTIC 10 BILLION DAILY MAINTENANCE [Concomitant]
     Dosage: 1 DF
  22. CHOLECALCIFEROL [Concomitant]
     Active Substance: CHOLECALCIFEROL
     Indication: Prophylaxis
     Dosage: 1 DF
  23. ZINC [Concomitant]
     Active Substance: ZINC
     Dosage: 1 DF

REACTIONS (11)
  - Condition aggravated [Not Recovered/Not Resolved]
  - Failure to thrive [Unknown]
  - Vomiting [Unknown]
  - Pyrexia [Unknown]
  - C-reactive protein increased [Unknown]
  - Leukocytosis [Unknown]
  - Clostridium difficile infection [Unknown]
  - Therapeutic response shortened [Unknown]
  - Heart rate increased [Unknown]
  - Drug level below therapeutic [Unknown]
  - Off label use [Unknown]

NARRATIVE: CASE EVENT DATE: 20240101
